FAERS Safety Report 6177551-5 (Version None)
Quarter: 2009Q2

REPORT INFORMATION
  Report Type: 
  Country: None (occurrence: None)
  Receive Date: 20090504
  Receipt Date: 20090427
  Transmission Date: 20091009
  Serious: Yes (Other)
  Sender: FDA-Public Use
  Company Number: US-ELI_LILLY_AND_COMPANY-US200904006383

PATIENT
  Sex: Male

DRUGS (1)
  1. HUMALOG [Suspect]
     Indication: TYPE 2 DIABETES MELLITUS
     Dosage: UNK, 3/D
     Dates: start: 20020101

REACTIONS (3)
  - DIABETIC NEUROPATHY [None]
  - EYE HAEMORRHAGE [None]
  - VISUAL ACUITY REDUCED [None]
